FAERS Safety Report 7804590 (Version 3)
Quarter: 2012Q4

REPORT INFORMATION
  Report Type: 
  Country: VE (occurrence: VE)
  Receive Date: 20110208
  Receipt Date: 20121111
  Transmission Date: 20130627
  Serious: Yes (Other)
  Sender: FDA-Public Use
  Company Number: PHHY2011VE06967

PATIENT
  Sex: Female

DRUGS (5)
  1. ACLASTA [Suspect]
     Indication: OSTEOPOROSIS
     Dosage: 5 mg, annually
     Dates: start: 200910
  2. ACLASTA [Suspect]
     Dosage: 5 mg annually
     Dates: start: 201010
  3. ACLASTA [Suspect]
     Dosage: 5 mg annually
     Dates: start: 20120703
  4. CENTRUM [Concomitant]
  5. CITRACAL + D [Concomitant]

REACTIONS (6)
  - Renal disorder [Recovered/Resolved]
  - Nephrolithiasis [Recovering/Resolving]
  - Cholelithiasis [None]
  - Dehydration [Unknown]
  - Syncope [Unknown]
  - Drug ineffective [Not Recovered/Not Resolved]
